FAERS Safety Report 4816908-9 (Version None)
Quarter: 2005Q4

REPORT INFORMATION
  Report Type: 
  Country: None (occurrence: None)
  Receive Date: 20051101
  Receipt Date: 20050915
  Transmission Date: 20060501
  Serious: Yes (Hospitalization, Other)
  Sender: FDA-Public Use
  Company Number: US-ABBOTT-05P-163-0311108-00

PATIENT
  Sex: Female
  Weight: 51.756 kg

DRUGS (6)
  1. HUMIRA 40 MG/ 0.8 ML PRE-FILLED SYRINGE [Suspect]
     Indication: RHEUMATOID ARTHRITIS
     Route: 058
     Dates: start: 20031201
  2. METHOTREXATE SODIUM [Concomitant]
     Indication: RHEUMATOID ARTHRITIS
  3. MINOCYCLINE [Concomitant]
     Indication: RHEUMATOID ARTHRITIS
     Route: 048
  4. OMEPRAZOLE [Concomitant]
     Indication: DYSPEPSIA
     Route: 048
  5. OXYCODONE HCL [Concomitant]
     Indication: ARTHRALGIA
     Route: 048
  6. MACROGOL [Concomitant]
     Indication: LAXATIVE SUPPORTIVE CARE
     Route: 048

REACTIONS (7)
  - ADENOCARCINOMA [None]
  - ADENOSQUAMOUS CELL LUNG CANCER [None]
  - AXILLARY MASS [None]
  - HYPERPLASIA [None]
  - LUNG NEOPLASM [None]
  - LYMPHADENOPATHY [None]
  - NEUROENDOCRINE CARCINOMA [None]
